FAERS Safety Report 14621351 (Version 1)
Quarter: 2018Q1

REPORT INFORMATION
  Report Type: Report from Study
  Country: US (occurrence: US)
  Receive Date: 20180310
  Receipt Date: 20180310
  Transmission Date: 20180509
  Serious: Yes (Other)
  Sender: FDA-Public Use
  Company Number: US-BRISTOL-MYERS SQUIBB COMPANY-BMS-2017-082002

PATIENT
  Sex: Female

DRUGS (1)
  1. NIVOLUMAB [Suspect]
     Active Substance: NIVOLUMAB
     Indication: NON-SMALL CELL LUNG CANCER
     Dosage: UNK
     Route: 042

REACTIONS (12)
  - Myalgia [Unknown]
  - Nerve compression [Unknown]
  - Fatigue [Unknown]
  - Memory impairment [Unknown]
  - Decreased appetite [Unknown]
  - Visual impairment [Unknown]
  - Back disorder [Unknown]
  - Faeces discoloured [Unknown]
  - Pollakiuria [Unknown]
  - Frequent bowel movements [Unknown]
  - Chest pain [Unknown]
  - Pain in extremity [Unknown]
